FAERS Safety Report 15893292 (Version 1)
Quarter: 2019Q1

REPORT INFORMATION
  Report Type: Spontaneous
  Country: CA (occurrence: CA)
  Receive Date: 20190130
  Receipt Date: 20190130
  Transmission Date: 20190417
  Serious: No
  Sender: FDA-Public Use
  Company Number: CA-EXELIXIS-CABO-18016433

PATIENT
  Sex: Female

DRUGS (2)
  1. CABOMETYX [Suspect]
     Active Substance: CABOZANTINIB S-MALATE
     Indication: RENAL CELL CARCINOMA
     Dosage: 60 MG, QD (3 WEEKS ON THEN ONE WEEK OFF)
     Dates: start: 20180501, end: 2018
  2. CABOMETYX [Suspect]
     Active Substance: CABOZANTINIB S-MALATE
     Dosage: 40 MG, QD (3 WEEKS ON THEN ONE WEEK OFF)
     Route: 048
     Dates: start: 2018, end: 20181016

REACTIONS (4)
  - Vomiting [Unknown]
  - Feeding disorder [Unknown]
  - Nausea [Unknown]
  - Diarrhoea [Unknown]

NARRATIVE: CASE EVENT DATE: 2018
